FAERS Safety Report 16313133 (Version 2)
Quarter: 2019Q2

REPORT INFORMATION
  Report Type: Spontaneous
  Country: DE (occurrence: DE)
  Receive Date: 20190515
  Receipt Date: 20190531
  Transmission Date: 20190711
  Serious: Yes (Other)
  Sender: FDA-Public Use
  Company Number: DE-TORRENT-00014031

PATIENT
  Age: 37 Year
  Sex: Female

DRUGS (2)
  1. ARPOYA 10 MG [Suspect]
     Active Substance: ARIPIPRAZOLE
     Indication: SCHIZOPHRENIA
     Route: 048
     Dates: start: 20190412, end: 20190510
  2. SALBUTAMOL [Concomitant]
     Active Substance: ALBUTEROL
     Indication: PRODUCT USED FOR UNKNOWN INDICATION
     Dosage: UNKNOWN

REACTIONS (5)
  - Asthma [Unknown]
  - Urinary incontinence [Unknown]
  - Asthenia [Unknown]
  - Insomnia [Unknown]
  - Anal incontinence [Unknown]
